FAERS Safety Report 24246650 (Version 1)
Quarter: 2024Q3

REPORT INFORMATION
  Report Type: Report from Study
  Country: US (occurrence: US)
  Receive Date: 20240825
  Receipt Date: 20240825
  Transmission Date: 20241017
  Serious: Yes (Other)
  Sender: ABBVIE
  Company Number: US-ABBVIE-5890052

PATIENT
  Sex: Female

DRUGS (1)
  1. RISANKIZUMAB [Suspect]
     Active Substance: RISANKIZUMAB
     Indication: Crohn^s disease
     Dosage: 1ST DOSE
     Route: 042
     Dates: start: 2024, end: 2024

REACTIONS (2)
  - Ingrowing nail [Unknown]
  - Infection [Unknown]

NARRATIVE: CASE EVENT DATE: 20240101
